FAERS Safety Report 6190696-9 (Version None)
Quarter: 2009Q2

REPORT INFORMATION
  Report Type: 
  Country: None (occurrence: None)
  Receive Date: 20090508
  Receipt Date: 20080331
  Transmission Date: 20091009
  Serious: Yes (Other)
  Sender: FDA-Public Use
  Company Number: 46142 - 1

PATIENT
  Sex: Female
  Weight: 57.6068 kg

DRUGS (1)
  1. ADRIAMYCIN PFS [Suspect]
     Indication: BREAST CANCER
     Dosage: IV EVERY THREE WEEKS
     Route: 042
     Dates: start: 20060401, end: 20060601

REACTIONS (3)
  - ALOPECIA [None]
  - CARDIAC FAILURE [None]
  - LABORATORY TEST ABNORMAL [None]
